FAERS Safety Report 6174444-4 (Version None)
Quarter: 2009Q2

REPORT INFORMATION
  Report Type: 
  Country: None (occurrence: None)
  Receive Date: 20090430
  Receipt Date: 20080609
  Transmission Date: 20091009
  Serious: No
  Sender: FDA-Public Use
  Company Number: US-ASTRAZENECA-2008UW11545

PATIENT
  Age: 78 Year
  Sex: Female
  Weight: 75.7 kg

DRUGS (5)
  1. NEXIUM [Suspect]
     Indication: GASTROOESOPHAGEAL REFLUX DISEASE
     Route: 048
  2. NEXIUM [Suspect]
     Route: 048
     Dates: start: 20080201
  3. REGLAN [Concomitant]
  4. BENICAR [Concomitant]
  5. LEXAPRO [Concomitant]

REACTIONS (4)
  - APHONIA [None]
  - DRUG INEFFECTIVE [None]
  - DYSPHONIA [None]
  - OROPHARYNGEAL PAIN [None]
